FAERS Safety Report 9417065 (Version 1)
Quarter: 2013Q3

REPORT INFORMATION
  Report Type: Report from Study
  Country: CA (occurrence: CA)
  Receive Date: 20130724
  Receipt Date: 20130724
  Transmission Date: 20140515
  Serious: Yes (Hospitalization, Other)
  Sender: FDA-Public Use
  Company Number: CA-ABBOTT-13P-028-1122518-00

PATIENT
  Age: 78 Year
  Sex: Female

DRUGS (2)
  1. HUMIRA [Suspect]
     Indication: CROHN^S DISEASE
     Route: 058
     Dates: start: 20120227
  2. HUMIRA [Suspect]
     Route: 058

REACTIONS (3)
  - Anaemia [Not Recovered/Not Resolved]
  - Fall [Recovered/Resolved]
  - Epistaxis [Not Recovered/Not Resolved]
